FAERS Safety Report 16920114 (Version 1)
Quarter: 2019Q4

REPORT INFORMATION
  Report Type: Report from Study
  Country: None (occurrence: US)
  Receive Date: 20191015
  Receipt Date: 20191015
  Transmission Date: 20200122
  Serious: Yes (Other)
  Sender: FDA-Public Use
  Company Number: US-ABBVIE-19K-163-2926616-00

PATIENT
  Age: 68 Year
  Sex: Male

DRUGS (1)
  1. MAVYRET [Suspect]
     Active Substance: GLECAPREVIR\PIBRENTASVIR
     Indication: HEPATITIS C
     Dosage: UNKNOWN
     Route: 048
     Dates: start: 20181205, end: 20190323

REACTIONS (5)
  - Weight decreased [Unknown]
  - Taste disorder [Unknown]
  - Loss of consciousness [Unknown]
  - Dysgeusia [Unknown]
  - Hypophagia [Unknown]

NARRATIVE: CASE EVENT DATE: 20181205
